FAERS Safety Report 19257310 (Version 2)
Quarter: 2021Q2

REPORT INFORMATION
  Report Type: Spontaneous
  Country: CN (occurrence: CN)
  Receive Date: 20210513
  Receipt Date: 20210520
  Transmission Date: 20210717
  Serious: Yes (Hospitalization)
  Sender: FDA-Public Use
  Company Number: CN-ASTRAZENECA-2021A374559

PATIENT
  Age: 49 Year
  Sex: Male
  Weight: 60 kg

DRUGS (2)
  1. APATINIB [Concomitant]
     Active Substance: APATINIB
     Route: 048
  2. IMFINZI [Suspect]
     Active Substance: DURVALUMAB
     Indication: NON-SMALL CELL LUNG CANCER STAGE III
     Dosage: 500.0MG UNKNOWN
     Route: 042
     Dates: start: 20201203, end: 20201226

REACTIONS (1)
  - Transaminases increased [Recovering/Resolving]
